FAERS Safety Report 11859283 (Version 1)
Quarter: 2015Q4

REPORT INFORMATION
  Report Type: Report from Study
  Country: US (occurrence: US)
  Receive Date: 20151221
  Receipt Date: 20151221
  Transmission Date: 20160305
  Serious: Yes (Other)
  Sender: FDA-Public Use
  Company Number: US-ASTRAZENECA-2013SE20479

PATIENT
  Age: 766 Month
  Sex: Male
  Weight: 93 kg

DRUGS (11)
  1. NEXIUM [Suspect]
     Active Substance: ESOMEPRAZOLE MAGNESIUM
     Indication: HIATUS HERNIA
     Route: 048
  2. PRILOSEC OTC [Suspect]
     Active Substance: OMEPRAZOLE MAGNESIUM
     Indication: HIATUS HERNIA
     Route: 048
  3. VITAMIN C [Concomitant]
     Active Substance: ASCORBIC ACID
  4. CINNAMON. [Concomitant]
     Active Substance: CINNAMON
  5. PRAVASTATIN [Concomitant]
     Active Substance: PRAVASTATIN\PRAVASTATIN SODIUM
     Indication: BLOOD CHOLESTEROL ABNORMAL
     Dates: start: 2011
  6. VITAMIN D [Concomitant]
     Active Substance: CHOLECALCIFEROL
  7. NEXIUM [Suspect]
     Active Substance: ESOMEPRAZOLE MAGNESIUM
     Indication: HIATUS HERNIA
     Route: 048
  8. HYDROCHLOROTHIAZIDE. [Concomitant]
     Active Substance: HYDROCHLOROTHIAZIDE
  9. NEXIUM [Suspect]
     Active Substance: ESOMEPRAZOLE MAGNESIUM
     Indication: HIATUS HERNIA
     Dosage: EVERY 3 TO 4 DAYS
     Route: 048
  10. ASPIRIN. [Concomitant]
     Active Substance: ASPIRIN
  11. COENZYME Q10 [Concomitant]
     Active Substance: UBIDECARENONE

REACTIONS (20)
  - Heart rate decreased [Unknown]
  - Brain hypoxia [Unknown]
  - Fluid retention [Unknown]
  - Oesophagitis [Unknown]
  - Spinal osteoarthritis [Unknown]
  - Gastrointestinal infection [Unknown]
  - Cerebrovascular accident [Unknown]
  - Atrial fibrillation [Unknown]
  - Stenosis [Unknown]
  - Myocardial infarction [Unknown]
  - Sinusitis [Unknown]
  - Thrombosis [Unknown]
  - Dyspepsia [Unknown]
  - Cardiac disorder [Unknown]
  - Pneumonia [Unknown]
  - Off label use [Unknown]
  - Drug ineffective [Unknown]
  - Arterial occlusive disease [Unknown]
  - Aortic dilatation [Unknown]
  - Diverticulum [Unknown]

NARRATIVE: CASE EVENT DATE: 201508
